FAERS Safety Report 9036205 (Version 1)
Quarter: 2013Q2

REPORT INFORMATION
  Report Type: Spontaneous
  Country: JP (occurrence: None)
  Receive Date: 20130116
  Receipt Date: 20130409
  Transmission Date: 20140414
  Serious: Yes (Life-Threatening)
  Sender: FDA-Public Use
  Company Number: TCI2013A00076

PATIENT
  Age: 73 Year
  Sex: Male

DRUGS (5)
  1. ACTOS (PIOGLITAZONE HYDROCHLORIDE) [Suspect]
     Indication: TYPE 2 DIABETES MELLITUS
     Route: 048
     Dates: start: 20060327, end: 20060619
  2. PRAVASTATIN SODIUM [Concomitant]
  3. MAGLAX [Concomitant]
  4. LANTUS (INSULIN GLARGINE) [Concomitant]
  5. HUMALOG (INSULIN LISPRO) [Concomitant]

REACTIONS (3)
  - Malignant neoplasm of renal pelvis [None]
  - Metastases to lymph nodes [None]
  - Gastrointestinal disorder [None]
